FAERS Safety Report 8879883 (Version 1)
Quarter: 2012Q4

REPORT INFORMATION
  Report Type: Report from Study
  Country: BR (occurrence: BR)
  Receive Date: 20121031
  Receipt Date: 20121031
  Transmission Date: 20130627
  Serious: Yes (Hospitalization)
  Sender: FDA-Public Use
  Company Number: BR-ROCHE-1150614

PATIENT
  Sex: Male
  Weight: 100 kg

DRUGS (4)
  1. RITUXIMAB [Suspect]
     Indication: RHEUMATOID ARTHRITIS
     Route: 042
     Dates: start: 20090801
  2. UNSPECIFIED MEDICATION [Concomitant]
  3. METHOTREXATE [Concomitant]
  4. ENDOFOLIN [Concomitant]

REACTIONS (1)
  - Hand deformity [Recovering/Resolving]
